FAERS Safety Report 13356466 (Version 1)
Quarter: 2017Q1

REPORT INFORMATION
  Report Type: Spontaneous
  Country: US (occurrence: US)
  Receive Date: 20170321
  Receipt Date: 20170321
  Transmission Date: 20170429
  Serious: No
  Sender: FDA-Public Use
  Company Number: US-GE HEALTHCARE LIFE SCIENCES-N123-PR-1609L-0002

PATIENT
  Age: 42 Year
  Sex: Female

DRUGS (6)
  1. PREDNISONE. [Concomitant]
     Active Substance: PREDNISONE
  2. MOMETASONE [Concomitant]
     Active Substance: MOMETASONE
  3. SODIUM IODIDE (123I) [Suspect]
     Active Substance: SODIUM IODIDE I-123
     Indication: THYROIDECTOMY
     Dosage: UNK, SINGLE
     Route: 065
  4. FORMOTEROL [Concomitant]
     Active Substance: FORMOTEROL
  5. AMOXICILLIN CLAVULANIC ACID [Concomitant]
     Active Substance: AMOXICILLIN\CLAVULANIC ACID
  6. LEVOTHYROXINE. [Concomitant]
     Active Substance: LEVOTHYROXINE

REACTIONS (2)
  - No adverse event [Recovered/Resolved]
  - False positive investigation result [Recovered/Resolved]
